FAERS Safety Report 21057207 (Version 1)
Quarter: 2022Q3

REPORT INFORMATION
  Report Type: Spontaneous
  Country: DE (occurrence: None)
  Receive Date: 20220708
  Receipt Date: 20220708
  Transmission Date: 20221026
  Serious: Yes (Other)
  Sender: FDA-Public Use
  Company Number: 2022A242002

PATIENT
  Sex: Female

DRUGS (2)
  1. LYNPARZA [Suspect]
     Active Substance: OLAPARIB
     Route: 048
  2. NIRAPARIB [Concomitant]
     Active Substance: NIRAPARIB

REACTIONS (2)
  - Metastases to bone [Unknown]
  - Dizziness [Unknown]
